FAERS Safety Report 4886241-8 (Version None)
Quarter: 2006Q1

REPORT INFORMATION
  Report Type: 
  Country: None (occurrence: None)
  Receive Date: 20060118
  Receipt Date: 20060105
  Transmission Date: 20060701
  Serious: Yes (Death, Other)
  Sender: FDA-Public Use
  Company Number: US200601000833

PATIENT
  Age: 74 Year
  Sex: Male
  Weight: 121.5 kg

DRUGS (1)
  1. OLANZAPINE [Suspect]
     Indication: ABNORMAL BEHAVIOUR
     Dates: start: 20020111, end: 20041101

REACTIONS (1)
  - DIABETIC COMA [None]
